FAERS Safety Report 23551030 (Version 1)
Quarter: 2024Q1

REPORT INFORMATION
  Report Type: Spontaneous
  Country: US (occurrence: US)
  Receive Date: 20240222
  Receipt Date: 20240222
  Transmission Date: 20240409
  Serious: Yes (Other)
  Sender: FDA-Public Use
  Company Number: US-GTI-000160

PATIENT
  Age: 27 Year
  Sex: Female

DRUGS (6)
  1. VALPROATE [Suspect]
     Active Substance: VALPROIC ACID
     Indication: Status migrainosus
     Route: 065
  2. AMITRIPTYLINE [Suspect]
     Active Substance: AMITRIPTYLINE
     Indication: Status migrainosus
     Route: 065
  3. TOPIRAMATE [Suspect]
     Active Substance: TOPIRAMATE
     Indication: Status migrainosus
     Route: 065
  4. ACETAZOLAMIDE [Suspect]
     Active Substance: ACETAZOLAMIDE
     Indication: Idiopathic intracranial hypertension
     Route: 065
  5. PREDNISONE [Suspect]
     Active Substance: PREDNISONE
     Indication: Status migrainosus
     Route: 065
  6. KETOROLAC [Suspect]
     Active Substance: KETOROLAC TROMETHAMINE
     Indication: Sickle cell anaemia with crisis
     Route: 042

REACTIONS (13)
  - Sickle cell anaemia with crisis [Unknown]
  - Neck pain [Unknown]
  - Pain [Unknown]
  - Tachypnoea [Unknown]
  - Acute respiratory failure [Unknown]
  - Multiple organ dysfunction syndrome [Unknown]
  - Cerebral microhaemorrhage [Unknown]
  - Brain stem microhaemorrhage [Unknown]
  - Cerebellar microhaemorrhage [Unknown]
  - Fat embolism syndrome [Unknown]
  - Mental status changes [Recovered/Resolved]
  - Numb chin syndrome [Recovered/Resolved]
  - Arthralgia [Unknown]
